FAERS Safety Report 9784027 (Version 2)
Quarter: 2014Q1

REPORT INFORMATION
  Report Type: Report from Study
  Country: CA (occurrence: CA)
  Receive Date: 20131226
  Receipt Date: 20140102
  Transmission Date: 20141002
  Serious: Yes (Hospitalization)
  Sender: FDA-Public Use
  Company Number: CA-JNJFOC-20131213178

PATIENT
  Age: 32 Year
  Sex: Male
  Weight: 100 kg

DRUGS (6)
  1. REMICADE [Suspect]
     Indication: COLITIS ULCERATIVE
     Route: 042
     Dates: start: 20131206
  2. IMURAN [Concomitant]
     Route: 065
  3. PREDNISONE [Concomitant]
     Route: 065
  4. SALOFALK [Concomitant]
     Route: 065
  5. CALCIUM [Concomitant]
     Route: 065
  6. VITAMIN D [Concomitant]
     Route: 065

REACTIONS (3)
  - Pyrexia [Unknown]
  - Nausea [Unknown]
  - Vomiting [Unknown]
